FAERS Safety Report 12492119 (Version 1)
Quarter: 2016Q2

REPORT INFORMATION
  Report Type: Spontaneous
  Country: US (occurrence: None)
  Receive Date: 20160622
  Receipt Date: 20160622
  Transmission Date: 20160815
  Serious: No
  Sender: FDA-Public Use
  Company Number: None

PATIENT
  Age: 85 Year
  Sex: Male
  Weight: 126.6 kg

DRUGS (1)
  1. CETUXIMAB [Suspect]
     Active Substance: CETUXIMAB
     Route: 058
     Dates: start: 20160324, end: 20160324

REACTIONS (4)
  - Hypotension [None]
  - Dyspnoea [None]
  - Rash [None]
  - Cough [None]

NARRATIVE: CASE EVENT DATE: 20160324
